FAERS Safety Report 9142548 (Version 1)
Quarter: 2013Q1

REPORT INFORMATION
  Report Type: Spontaneous
  Country: CA (occurrence: CA)
  Receive Date: 20130306
  Receipt Date: 20130306
  Transmission Date: 20140127
  Serious: Yes (Other)
  Sender: FDA-Public Use
  Company Number: CA-AMGEN-CANSP2012070843

PATIENT
  Age: 80 Year
  Sex: Female
  Weight: 66.5 kg

DRUGS (16)
  1. PROLIA [Suspect]
     Indication: OSTEOPOROSIS
     Dosage: 60 MG, Q6MO
     Route: 058
     Dates: start: 20120726
  2. COVERSYL                           /00790702/ [Concomitant]
     Dosage: UNK UNK, QD
  3. FLORINEF ACETAT [Concomitant]
     Dosage: 0.1 MG, QD
  4. LOSEC                              /00661201/ [Concomitant]
     Dosage: 20 MG, QD
  5. APO-METOPROLOL [Concomitant]
     Dosage: 25 MG, BID
  6. CALCIUM [Concomitant]
     Dosage: 500 MG, QD
  7. CRESTOR [Concomitant]
     Dosage: 20 MG, QD
  8. SPIRONOLACTONE [Concomitant]
     Dosage: 12.5 MG, QD
  9. VITAMIN B12                        /00056201/ [Concomitant]
     Dosage: 1000 MUG, QMO
     Route: 058
  10. VITAMIN D3 [Concomitant]
     Dosage: 1000 IU, QD
  11. NITRO-DUR [Concomitant]
     Dosage: 0.4 MG, QD
  12. REQUIP [Concomitant]
     Dosage: 0.25 MG, QHS
  13. RHO-NITRO PUMPSPRAY [Concomitant]
  14. METOPROLOL [Concomitant]
     Dosage: 25 MG, BID
  15. FUROSEMIDE [Concomitant]
     Dosage: 20 MG, BID
  16. NITROGLYCERIN [Concomitant]
     Dosage: UNK UNK, AS NECESSARY

REACTIONS (4)
  - Neoplasm malignant [Unknown]
  - Oropharyngeal pain [Unknown]
  - Middle insomnia [Unknown]
  - Pneumonia [Recovered/Resolved]
